FAERS Safety Report 4541963-3 (Version None)
Quarter: 2004Q4

REPORT INFORMATION
  Report Type: 
  Country: None (occurrence: None)
  Receive Date: 20041227
  Receipt Date: 20041216
  Transmission Date: 20050328
  Serious: Yes (Hospitalization, Other)
  Sender: FDA-Public Use
  Company Number: 210600

PATIENT
  Age: 63 Year
  Sex: Male
  Weight: 81.6 kg

DRUGS (10)
  1. XOLAIR [Suspect]
     Indication: ASTHMA
     Dosage: 150 MG, Q4W, SUBCUTANEOUS
     Route: 058
     Dates: start: 20040417
  2. ADVAIR (FLUTICASONE PROPIONATE, SALMETEROL XINAFOATE) [Concomitant]
  3. SINGULAIR [Concomitant]
  4. ALLEGRA [Concomitant]
  5. XOPENEX [Concomitant]
  6. PULMICORT [Concomitant]
  7. PREVACID [Concomitant]
  8. NEXIUM [Concomitant]
  9. NASACORT AQ (TRIAMCINOLONE ACETONIDE) [Concomitant]
  10. DELTASONE [Concomitant]

REACTIONS (1)
  - CARDIAC MYXOMA [None]
